FAERS Safety Report 8043023-6 (Version None)
Quarter: 2012Q1

REPORT INFORMATION
  Report Type: 
  Country: None (occurrence: None)
  Receive Date: 20120112
  Receipt Date: 20120105
  Transmission Date: 20120608
  Serious: Yes (Hospitalization, Other)
  Sender: FDA-Public Use
  Company Number: PHHY2010US55826

PATIENT
  Age: 54 Year
  Sex: Female

DRUGS (3)
  1. PULMOZYME [Concomitant]
  2. TOBI [Suspect]
     Indication: PSEUDOMONAS INFECTION
  3. TOBI [Suspect]
     Indication: CYSTIC FIBROSIS
     Dosage: 300 MG, BID
     Dates: start: 20090707

REACTIONS (4)
  - RESPIRATORY TRACT INFECTION [None]
  - UPPER RESPIRATORY TRACT INFECTION [None]
  - LUNG INFECTION [None]
  - STAPHYLOCOCCAL INFECTION [None]
